FAERS Safety Report 7095663-9 (Version None)
Quarter: 2010Q4

REPORT INFORMATION
  Report Type: 
  Country: None (occurrence: None)
  Receive Date: 20101111
  Receipt Date: 20090115
  Transmission Date: 20110411
  Serious: No
  Sender: FDA-Public Use
  Company Number: US-KINGPHARMUSA00001-K200900044

PATIENT
  Sex: Female
  Weight: 95.692 kg

DRUGS (1)
  1. SKELAXIN [Suspect]
     Indication: MUSCLE SPASMS
     Dosage: .5 TO 1 TABLET, TID PRN
     Route: 048
     Dates: start: 20090107, end: 20090101

REACTIONS (2)
  - DRUG INEFFECTIVE [None]
  - INSOMNIA [None]
